FAERS Safety Report 5892406-9 (Version None)
Quarter: 2008Q3

REPORT INFORMATION
  Report Type: 
  Country: None (occurrence: None)
  Receive Date: 20080919
  Receipt Date: 20080919
  Transmission Date: 20090109
  Serious: No
  Sender: FDA-Public Use
  Company Number: None

PATIENT
  Age: 65 Year
  Sex: Female
  Weight: 70.7611 kg

DRUGS (3)
  1. LISINOPRIL [Suspect]
     Indication: HYPERTENSION
     Dosage: 1 X 10 MG DAILY PO
     Route: 048
     Dates: start: 20080912, end: 20080916
  2. VAGIFEM [Concomitant]
  3. PROMETRIUM [Concomitant]

REACTIONS (7)
  - CHILLS [None]
  - DIARRHOEA [None]
  - HEADACHE [None]
  - MOVEMENT DISORDER [None]
  - NAUSEA [None]
  - PAIN [None]
  - PYREXIA [None]
